FAERS Safety Report 12736711 (Version 1)
Quarter: 2016Q3

REPORT INFORMATION
  Report Type: Spontaneous
  Country: BE (occurrence: BE)
  Receive Date: 20160913
  Receipt Date: 20160913
  Transmission Date: 20161109
  Serious: Yes (Hospitalization)
  Sender: FDA-Public Use
  Company Number: PHHY2016BE125381

PATIENT
  Age: 53 Year
  Sex: Female
  Weight: 60 kg

DRUGS (11)
  1. TEGRETOL [Suspect]
     Active Substance: CARBAMAZEPINE
     Dosage: 600 MG, QD
     Route: 048
     Dates: start: 201510, end: 20151231
  2. DIPHANTOINE [Suspect]
     Active Substance: PHENYTOIN
     Dosage: 150 MG, QD
     Route: 048
     Dates: start: 201608
  3. TEGRETOL [Suspect]
     Active Substance: CARBAMAZEPINE
     Indication: EPILEPSY
     Dosage: 400 MG, QD
     Route: 048
     Dates: start: 201507, end: 201510
  4. TEGRETOL [Suspect]
     Active Substance: CARBAMAZEPINE
     Dosage: 500 MG, QD
     Route: 048
     Dates: start: 20160101, end: 2016
  5. DIPHANTOINE [Suspect]
     Active Substance: PHENYTOIN
     Dosage: 100 MG, QD
     Route: 048
     Dates: start: 201608, end: 201608
  6. TEGRETOL [Suspect]
     Active Substance: CARBAMAZEPINE
     Dosage: 800 MG, QD
     Route: 048
     Dates: start: 2016, end: 2016
  7. DIPHANTOINE [Suspect]
     Active Substance: PHENYTOIN
     Indication: EPILEPSY
     Dosage: 200 MG, QD
     Route: 048
     Dates: start: 201410, end: 2016
  8. DEPAKINE CHRONO [Concomitant]
     Active Substance: VALPROATE SODIUM
     Indication: PRODUCT USED FOR UNKNOWN INDICATION
     Route: 065
  9. TEGRETOL [Suspect]
     Active Substance: CARBAMAZEPINE
     Dosage: 600 MG, QD (3 X 200 MG)
     Route: 048
     Dates: start: 2016
  10. FYCOMPA [Suspect]
     Active Substance: PERAMPANEL
     Indication: EPILEPSY
     Dosage: 2 MG, QD
     Route: 048
     Dates: start: 20160603
  11. TEGRETOL [Suspect]
     Active Substance: CARBAMAZEPINE
     Dosage: 700 MG, QD
     Route: 048
     Dates: start: 2016, end: 2016

REACTIONS (2)
  - Toxicity to various agents [Recovered/Resolved]
  - Hyponatraemia [Recovered/Resolved]

NARRATIVE: CASE EVENT DATE: 20160624
